FAERS Safety Report 4538029-5 (Version None)
Quarter: 2004Q4

REPORT INFORMATION
  Report Type: 
  Country: None (occurrence: None)
  Receive Date: 20041226
  Receipt Date: 20041220
  Transmission Date: 20050328
  Serious: Yes (Hospitalization, Other)
  Sender: FDA-Public Use
  Company Number: US-ABBOTT-04P-163-0284382-00

PATIENT
  Sex: Female
  Weight: 66.284 kg

DRUGS (5)
  1. HUMIRA [Suspect]
     Indication: RHEUMATOID ARTHRITIS
     Dates: start: 20040601, end: 20040901
  2. HUMIRA [Suspect]
     Dates: start: 20040901
  3. VERAPAMIL [Concomitant]
     Indication: HYPERTENSION
     Route: 048
     Dates: start: 20020101
  4. PLAQUENIL [Concomitant]
     Indication: ARTHRITIS
     Route: 048
     Dates: start: 19940101
  5. SULINDAC [Concomitant]
     Indication: ARTHRITIS
     Route: 048
     Dates: start: 20040101

REACTIONS (3)
  - DIVERTICULITIS [None]
  - NASOPHARYNGITIS [None]
  - RASH [None]
